FAERS Safety Report 15021082 (Version 1)
Quarter: 2018Q2

REPORT INFORMATION
  Report Type: Spontaneous
  Country: US (occurrence: US)
  Receive Date: 20180618
  Receipt Date: 20180618
  Transmission Date: 20180711
  Serious: Yes (Other)
  Sender: FDA-Public Use
  Company Number: US-TEVA-2018-US-906894

PATIENT
  Age: 64 Year
  Sex: Female

DRUGS (3)
  1. CLONAZEPAM. [Suspect]
     Active Substance: CLONAZEPAM
     Indication: PANIC DISORDER
     Dosage: 2 MILLIGRAM DAILY;
     Route: 065
  2. CLONAZEPAM. [Suspect]
     Active Substance: CLONAZEPAM
     Dosage: 3 MILLIGRAM DAILY;
  3. CLONAZEPAM. [Suspect]
     Active Substance: CLONAZEPAM
     Dosage: 2.25 MILLIGRAM DAILY;
     Route: 065

REACTIONS (11)
  - Nausea [Unknown]
  - Insomnia [Unknown]
  - Anxiety [Unknown]
  - Agoraphobia [Unknown]
  - Influenza [Unknown]
  - Wrong technique in product usage process [Unknown]
  - Mental disorder [Unknown]
  - Withdrawal syndrome [Unknown]
  - Tachycardia [Unknown]
  - Drug dependence [Unknown]
  - Suicidal ideation [Unknown]
